FAERS Safety Report 7898135 (Version 9)
Quarter: 2014Q1

REPORT INFORMATION
  Report Type: Report from Study
  Country: NL (occurrence: NL)
  Receive Date: 20110413
  Receipt Date: 20140319
  Transmission Date: 20141002
  Serious: Yes (Hospitalization, Other)
  Sender: FDA-Public Use
  Company Number: PHHO2011NL02695

PATIENT
  Sex: 0

DRUGS (11)
  1. CERTICAN [Suspect]
     Indication: RENAL TRANSPLANT
     Dosage: 3.5 MG, BID
     Route: 048
     Dates: start: 20110202
  2. PROGRAF [Suspect]
     Indication: RENAL TRANSPLANT
     Dosage: UNK
     Route: 048
     Dates: start: 20101124
  3. MYFORTIC [Suspect]
     Indication: RENAL TRANSPLANT
     Dosage: 720 MG, BID
     Route: 048
     Dates: start: 20111124
  4. PERINDOPRIL [Suspect]
     Dosage: 8 MG, QD
     Dates: start: 20111017, end: 20111017
  5. HYDROCHLOROTHIAZIDE [Suspect]
     Indication: HYPERTENSION
     Dosage: 12.5 MG, QD
     Dates: start: 20111017, end: 20111017
  6. CO-TRIMOXAZOL [Suspect]
     Dosage: 900 MG, QD
     Dates: start: 20101127, end: 20110126
  7. ZANTAC [Suspect]
     Indication: PROPHYLAXIS
     Dosage: 150 MG, QD
     Dates: start: 20101124, end: 20110126
  8. VALGANCICLOVIR [Suspect]
     Indication: PROPHYLAXIS
     Dosage: 480 MG, QD
     Dates: start: 20100128, end: 20110126
  9. STEROIDS NOS [Suspect]
     Dosage: 7.5 MG, QD
     Dates: start: 20101124
  10. STEROIDS NOS [Suspect]
     Dosage: 15 MG, UNK
     Route: 048
  11. INFLUENZA VACCINE [Suspect]

REACTIONS (7)
  - Gastrointestinal infection [Recovered/Resolved]
  - Febrile neutropenia [Recovered/Resolved]
  - Pyrexia [Recovered/Resolved]
  - Viral infection [Unknown]
  - Mouth ulceration [Recovered/Resolved]
  - Blood creatinine increased [Recovered/Resolved]
  - Hypokalaemia [Recovered/Resolved]
